FAERS Safety Report 10172786 (Version 2)
Quarter: 2014Q2

REPORT INFORMATION
  Report Type: Spontaneous
  Country: US (occurrence: US)
  Receive Date: 20140515
  Receipt Date: 20140515
  Transmission Date: 20141212
  Serious: Yes (Other)
  Sender: FDA-Public Use
  Company Number: US-US-EMD SERONO, INC.-235312K07USA

PATIENT
  Sex: Male

DRUGS (4)
  1. REBIF [Suspect]
     Indication: MULTIPLE SCLEROSIS
     Route: 058
     Dates: start: 20040823, end: 20050906
  2. REBIF [Suspect]
     Route: 058
     Dates: start: 20061218, end: 20070225
  3. REBIF [Suspect]
     Route: 058
     Dates: start: 20140507
  4. TYLENOL                            /00020001/ [Concomitant]
     Indication: PREMEDICATION

REACTIONS (5)
  - Thrombosis [Unknown]
  - Intervertebral disc protrusion [Unknown]
  - Nervous system neoplasm [Unknown]
  - Swelling face [Not Recovered/Not Resolved]
  - Peripheral swelling [Not Recovered/Not Resolved]
